FAERS Safety Report 14559903 (Version 2)
Quarter: 2018Q1

REPORT INFORMATION
  Report Type: Spontaneous
  Country: US (occurrence: US)
  Receive Date: 20180221
  Receipt Date: 20180330
  Transmission Date: 20180509
  Serious: Yes (Death, Other)
  Sender: FDA-Public Use
  Company Number: US-INSYS THERAPEUTICS, INC-INS201802-000058

PATIENT
  Age: 50 Year
  Sex: Male

DRUGS (11)
  1. SUBSYS [Suspect]
     Active Substance: FENTANYL
     Dates: start: 201711
  2. OXYCODONE [Concomitant]
     Active Substance: OXYCODONE
  3. SUBSYS [Suspect]
     Active Substance: FENTANYL
     Indication: BREAKTHROUGH PAIN
     Dates: start: 201607
  4. SUBSYS [Suspect]
     Active Substance: FENTANYL
     Dates: start: 20180102
  5. MARINOL [Concomitant]
     Active Substance: DRONABINOL
  6. MAGNESIUM [Concomitant]
     Active Substance: MAGNESIUM
  7. VITAMNIN B12 [Concomitant]
  8. MS CONTIN [Concomitant]
     Active Substance: MORPHINE SULFATE
  9. ZOFRAN [Concomitant]
     Active Substance: ONDANSETRON HYDROCHLORIDE
  10. SUBSYS [Suspect]
     Active Substance: FENTANYL
     Dates: start: 201708
  11. IBUPROFEN. [Concomitant]
     Active Substance: IBUPROFEN

REACTIONS (3)
  - Unresponsive to stimuli [Unknown]
  - Overdose [Fatal]
  - Feeling abnormal [Unknown]

NARRATIVE: CASE EVENT DATE: 20180204
